FAERS Safety Report 9735601 (Version 1)
Quarter: 2013Q4

REPORT INFORMATION
  Report Type: Spontaneous
  Country: US (occurrence: US)
  Receive Date: 20131206
  Receipt Date: 20131206
  Transmission Date: 20140711
  Serious: Yes (Other)
  Sender: FDA-Public Use
  Company Number: US-MYLANLABS-2013S1026840

PATIENT
  Age: 45 Year
  Sex: Female

DRUGS (2)
  1. THIAMAZOLE [Suspect]
     Indication: BASEDOW^S DISEASE
     Dosage: 20MG DAILY
     Route: 048
  2. ATENOLOL [Concomitant]
     Dosage: 25MG DAILY
     Route: 048

REACTIONS (5)
  - Hepatitis cholestatic [Recovering/Resolving]
  - Liver function test abnormal [Recovered/Resolved]
  - Pruritus [Recovered/Resolved]
  - Urine abnormality [Unknown]
  - Jaundice [Recovered/Resolved]
